FAERS Safety Report 9434998 (Version 1)
Quarter: 2013Q3

REPORT INFORMATION
  Report Type: Spontaneous
  Country: DE (occurrence: None)
  Receive Date: 20130730
  Receipt Date: 20130730
  Transmission Date: 20140515
  Serious: Yes (Other)
  Sender: FDA-Public Use
  Company Number: 2013P1013001

PATIENT
  Age: 71 Year
  Sex: Male

DRUGS (4)
  1. CEFAZOLIN [Suspect]
     Indication: ANTIBIOTIC PROPHYLAXIS
     Route: 042
     Dates: start: 20130121, end: 20130121
  2. PROPOFOL [Concomitant]
  3. ULTIVA [Concomitant]
  4. MIVACRON [Concomitant]

REACTIONS (2)
  - Shock [None]
  - Erythema [None]
